FAERS Safety Report 6689024-1 (Version None)
Quarter: 2010Q2

REPORT INFORMATION
  Report Type: 
  Country: None (occurrence: None)
  Receive Date: 20100420
  Receipt Date: 20100412
  Transmission Date: 20101027
  Serious: Yes (Hospitalization, Other)
  Sender: FDA-Public Use
  Company Number: PHHY2009DE32719

PATIENT
  Age: 57 Year
  Sex: Male
  Weight: 88 kg

DRUGS (13)
  1. CERTICAN [Suspect]
     Indication: RENAL TRANSPLANT
     Dosage: 1.5 MG, BID
     Route: 048
     Dates: start: 20090401
  2. CERTICAN [Suspect]
     Indication: IMMUNOSUPPRESSION
  3. CELLCEPT [Suspect]
     Indication: IMMUNOSUPPRESSION
     Dosage: 500 MG, BID
     Route: 048
     Dates: start: 20070101
  4. ALFACALCIDOL [Concomitant]
     Indication: CALCIUM DEFICIENCY
     Dosage: 0.5 UG, QD
     Route: 048
     Dates: start: 20030101
  5. BENZBROMARONE [Concomitant]
     Indication: HYPERURICAEMIA
     Dosage: 100 MG, QD
     Route: 048
  6. FALITHROM [Concomitant]
     Indication: AORTIC VALVE REPLACEMENT
     Dosage: 1.5 MG, QD
     Route: 048
     Dates: start: 20060101
  7. LEVOTHYROXINE SODIUM [Concomitant]
     Indication: HYPOTHYROIDISM
     Dosage: 50 UG, QD
     Route: 048
     Dates: start: 20030101
  8. LOCOL [Concomitant]
     Indication: CORONARY ARTERY DISEASE
     Dosage: 80 MG, QD
     Route: 048
     Dates: start: 19990101
  9. METOPROLOL TARTRATE [Concomitant]
     Indication: HYPERTENSION
     Dosage: 47.5 MG, BID
     Route: 048
     Dates: start: 19940101
  10. PANTOPRAZOLE [Concomitant]
     Indication: PROPHYLAXIS AGAINST GASTROINTESTINAL ULCER
     Dosage: 40 MG, QD
     Route: 048
  11. PREDNISOLONE [Concomitant]
     Indication: RENAL TRANSPLANT
     Dosage: 5 MG, UNK
     Route: 048
     Dates: start: 20070101
  12. RAMIPRIL [Concomitant]
     Indication: HYPERTENSION
     Dosage: 2.5 MG, QD
     Route: 048
     Dates: start: 19940101
  13. TORSEMIDE [Concomitant]
     Indication: HYPERTENSION
     Dosage: 10 MG, QD
     Route: 048

REACTIONS (11)
  - ARTHRALGIA [None]
  - ASTHENIA [None]
  - BODY TEMPERATURE DECREASED [None]
  - BRONCHITIS [None]
  - BRONCHITIS BACTERIAL [None]
  - FEELING ABNORMAL [None]
  - FLATULENCE [None]
  - NAUSEA [None]
  - PAIN IN EXTREMITY [None]
  - POLYNEUROPATHY [None]
  - SPUTUM DISCOLOURED [None]
